FAERS Safety Report 24216425 (Version 1)
Quarter: 2024Q3

REPORT INFORMATION
  Report Type: Spontaneous
  Country: PT (occurrence: PT)
  Receive Date: 20240816
  Receipt Date: 20240816
  Transmission Date: 20241017
  Serious: Yes (Hospitalization, Other)
  Sender: AUROBINDO
  Company Number: PT-AUROBINDO-AUR-APL-2023-041564

PATIENT
  Age: 60 Year
  Sex: Female

DRUGS (2)
  1. MYCOPHENOLATE MOFETIL [Suspect]
     Active Substance: MYCOPHENOLATE MOFETIL
     Indication: Immunosuppression
     Dosage: UNK
     Route: 065
  2. PREDNISOLONE [Suspect]
     Active Substance: PREDNISOLONE
     Indication: Immunosuppression
     Dosage: UNK
     Route: 065

REACTIONS (9)
  - Pyelonephritis acute [Unknown]
  - Endocarditis [Recovered/Resolved]
  - Pyelonephritis [Recovered/Resolved]
  - Staphylococcal bacteraemia [Recovered/Resolved]
  - Pancytopenia [Recovered/Resolved]
  - Haematotoxicity [Recovered/Resolved]
  - Mycobacterial infection [Recovered/Resolved]
  - Atypical mycobacterial infection [Recovered/Resolved]
  - Toxicity to various agents [Unknown]
